FAERS Safety Report 9622926 (Version 3)
Quarter: 2014Q2

REPORT INFORMATION
  Report Type: Spontaneous
  Country: GB (occurrence: GB)
  Receive Date: 20131015
  Receipt Date: 20140530
  Transmission Date: 20141212
  Serious: Yes (Death, Hospitalization, Disabling, Other)
  Sender: FDA-Public Use
  Company Number: GB-OTSUKA-EU-2013-10239

PATIENT
  Age: 80 Year
  Sex: Female
  Weight: 77.2 kg

DRUGS (9)
  1. SAMSCA [Suspect]
     Indication: HYPONATRAEMIA
     Dosage: 15 MG MILLIGRAM(S), QOD
     Route: 048
     Dates: start: 20130806, end: 20130911
  2. SAMSCA [Suspect]
     Indication: INAPPROPRIATE ANTIDIURETIC HORMONE SECRETION
  3. AMLODIPINE [Concomitant]
     Dosage: 10 MG MILLIGRAM(S), UNKNOWN
     Route: 048
  4. ASPIRIN [Concomitant]
     Dosage: 75 MG MILLIGRAM(S), UNKNOWN
     Route: 048
  5. DEXAMETHASONE [Concomitant]
     Indication: LUNG NEOPLASM MALIGNANT
     Dosage: 2 MG MILLIGRAM(S), UNKNOWN
     Route: 048
     Dates: start: 20130730
  6. LANSOPRAZOLE [Concomitant]
     Dosage: 15 MG MILLIGRAM(S), UNKNOWN
     Route: 048
  7. LEVOTHYROXINE [Concomitant]
     Dosage: 50 MG MILLIGRAM(S), UNKNOWN
     Route: 048
  8. LISINOPRIL [Concomitant]
     Dosage: 20 MG MILLIGRAM(S), UNKNOWN
     Route: 048
  9. SIMVASTATIN [Concomitant]
     Dosage: 20 MG MILLIGRAM(S), UNKNOWN
     Route: 048

REACTIONS (12)
  - Hepatic failure [Fatal]
  - Atrial fibrillation [Unknown]
  - Abdominal pain upper [Unknown]
  - Liver tenderness [Unknown]
  - Hepatitis acute [Not Recovered/Not Resolved]
  - Hepatorenal syndrome [Not Recovered/Not Resolved]
  - Renal failure [Not Recovered/Not Resolved]
  - Liver function test abnormal [Unknown]
  - Jaundice [Not Recovered/Not Resolved]
  - Asthenia [Unknown]
  - Malaise [Unknown]
  - Incorrect drug administration rate [Unknown]
